FAERS Safety Report 9165340 (Version 2)
Quarter: 2013Q2

REPORT INFORMATION
  Report Type: Report from Study
  Country: DE (occurrence: DE)
  Receive Date: 20130315
  Receipt Date: 20130408
  Transmission Date: 20140414
  Serious: Yes (Hospitalization)
  Sender: FDA-Public Use
  Company Number: DE-BRISTOL-MYERS SQUIBB COMPANY-17453028

PATIENT
  Age: 70 Year
  Sex: Female
  Weight: 74 kg

DRUGS (7)
  1. CARBOPLATIN [Suspect]
     Indication: OVARIAN CANCER
     Dosage: LAST DOSE PRIOR TO SAE 19FEB2013
     Route: 042
     Dates: start: 20130129
  2. PACLITAXEL [Suspect]
     Indication: OVARIAN CANCER
     Dosage: LAST DOSE PRIOR TO SAE:19FEB2013
     Route: 042
     Dates: start: 20130129
  3. BEVACIZUMAB [Suspect]
     Indication: OVARIAN CANCER
     Dosage: LAST DOSE PRIOR TO SAE:19FEB2013
     Route: 042
     Dates: start: 20130219
  4. DIGIMERCK [Concomitant]
     Indication: HYPERTENSION
     Dosage: LAST DOSE-01MAR13
     Route: 048
     Dates: start: 19800701, end: 20130301
  5. METFORMIN HCL [Concomitant]
     Indication: TYPE 1 DIABETES MELLITUS
     Dosage: LAST DOSE-01MAR13
     Route: 048
     Dates: start: 19800701, end: 20130301
  6. CAPTOPRIL [Concomitant]
     Indication: HYPERTENSION
     Dosage: LAST DOSE-01MAR13
     Route: 048
     Dates: start: 19800701, end: 20130301
  7. METOPROLOL [Concomitant]

REACTIONS (1)
  - Pyrexia [Recovered/Resolved]
